FAERS Safety Report 25533561 (Version 1)
Quarter: 2025Q3

REPORT INFORMATION
  Report Type: Spontaneous
  Country: US (occurrence: None)
  Receive Date: 20250708
  Receipt Date: 20250708
  Transmission Date: 20251020
  Serious: Yes (Disabling)
  Sender: FDA-CTU
  Company Number: None

PATIENT
  Age: 56 Year
  Sex: Male
  Weight: 112.5 kg

DRUGS (1)
  1. SILDENAFIL\TADALAFIL [Suspect]
     Active Substance: SILDENAFIL\TADALAFIL
     Indication: Erectile dysfunction
     Route: 048
     Dates: start: 20250702, end: 20250708

REACTIONS (4)
  - Epistaxis [None]
  - Migraine [None]
  - Nausea [None]
  - Fatigue [None]

NARRATIVE: CASE EVENT DATE: 20250708
